FAERS Safety Report 6992936-2 (Version None)
Quarter: 2010Q3

REPORT INFORMATION
  Report Type: 
  Country: None (occurrence: None)
  Receive Date: 20100917
  Receipt Date: 20100907
  Transmission Date: 20110219
  Serious: Yes (Other)
  Sender: FDA-Public Use
  Company Number: HU-NAPPMUNDI-DEU-2009-0005741

PATIENT
  Sex: Female

DRUGS (7)
  1. OXY CR TAB [Suspect]
     Indication: PAIN
     Dosage: 20 MG, SINGLE
     Route: 048
     Dates: start: 20091201, end: 20091201
  2. CO-PRENESSA [Concomitant]
  3. BISOCARD [Concomitant]
  4. FURON                              /00032601/ [Concomitant]
  5. KALIUM-R [Concomitant]
  6. MILURIT [Concomitant]
  7. FRONTIN [Concomitant]
     Dosage: UNK

REACTIONS (4)
  - HYPERHIDROSIS [None]
  - PALPITATIONS [None]
  - TREMOR [None]
  - VERTIGO [None]
